FAERS Safety Report 9687669 (Version 1)
Quarter: 2013Q4

REPORT INFORMATION
  Report Type: Spontaneous
  Country: US (occurrence: US)
  Receive Date: 20131114
  Receipt Date: 20131114
  Transmission Date: 20140711
  Serious: No
  Sender: FDA-Public Use
  Company Number: US-PFIZER INC-2013323568

PATIENT
  Age: 56 Year
  Sex: Female
  Weight: 107.3 kg

DRUGS (5)
  1. GABAPENTIN [Suspect]
     Indication: PAIN
     Dosage: 300 MG, 3X/DAY
     Route: 048
     Dates: start: 201310
  2. MORPHINE SULFATE [Suspect]
     Indication: PAIN
     Dosage: 15 MG, 2X/DAY
  3. PERCOCET [Concomitant]
     Dosage: 325/5 MG/MG, AS NEEDED
  4. BACLOFEN [Concomitant]
     Dosage: UNK
  5. LISINOPRIL [Concomitant]
     Indication: HYPERTENSION
     Dosage: UNK

REACTIONS (2)
  - Rash [Unknown]
  - Hypersensitivity [Unknown]
